FAERS Safety Report 10010981 (Version 3)
Quarter: 2014Q2

REPORT INFORMATION
  Report Type: Spontaneous
  Country: US (occurrence: US)
  Receive Date: 20140314
  Receipt Date: 20140403
  Transmission Date: 20141212
  Serious: Yes (Hospitalization)
  Sender: FDA-Public Use
  Company Number: US-BAXTER-2014BAX012599

PATIENT
  Sex: Female

DRUGS (2)
  1. DIANEAL LOW CALCIUM [Suspect]
     Indication: PERITONEAL DIALYSIS
     Route: 033
     Dates: start: 201308
  2. COUMADIN [Concomitant]
     Indication: ATRIAL FIBRILLATION

REACTIONS (2)
  - Peripheral artery thrombosis [Recovering/Resolving]
  - Cerebrovascular accident [Unknown]
